FAERS Safety Report 11195199 (Version 2)
Quarter: 2017Q1

REPORT INFORMATION
  Report Type: Spontaneous
  Country: US (occurrence: US)
  Receive Date: 20150617
  Receipt Date: 20170126
  Transmission Date: 20170428
  Serious: Yes (Other)
  Sender: FDA-Public Use
  Company Number: US-ELI_LILLY_AND_COMPANY-US201506004690

PATIENT
  Age: 31 Year
  Sex: Female
  Weight: 114.74 kg

DRUGS (1)
  1. CYMBALTA [Suspect]
     Active Substance: DULOXETINE HYDROCHLORIDE
     Indication: PRODUCT USED FOR UNKNOWN INDICATION
     Dosage: 20 MG, UNKNOWN
     Route: 065
     Dates: start: 20140714, end: 201501

REACTIONS (15)
  - Sleep disorder [Unknown]
  - Affect lability [Unknown]
  - Nightmare [Unknown]
  - Anxiety [Unknown]
  - Fatigue [Unknown]
  - Vertigo [Unknown]
  - Suicidal ideation [Unknown]
  - Nausea [Unknown]
  - Hyperhidrosis [Unknown]
  - Dizziness [Unknown]
  - Mood swings [Unknown]
  - Paraesthesia [Unknown]
  - Drug withdrawal syndrome [Unknown]
  - Dysphoria [Unknown]
  - Malaise [Unknown]

NARRATIVE: CASE EVENT DATE: 20150124
